FAERS Safety Report 4306764-X (Version None)
Quarter: 2004Q1

REPORT INFORMATION
  Report Type: 
  Country: None (occurrence: None)
  Receive Date: 20040227
  Receipt Date: 20040209
  Transmission Date: 20041129
  Serious: Yes (Death)
  Sender: FDA-Public Use
  Company Number: 200410317JP

PATIENT
  Age: 58 Year
  Sex: Male
  Weight: 85.5 kg

DRUGS (7)
  1. LANTUS [Suspect]
     Indication: DIABETES MELLITUS NON-INSULIN-DEPENDENT
     Dosage: DOSE UNIT: UNITS
     Route: 058
     Dates: start: 20040116, end: 20040119
  2. NOVORAPID [Concomitant]
     Indication: DIABETES MELLITUS
     Dates: start: 20020524, end: 20040120
  3. LIPANTIL [Concomitant]
     Indication: HYPERLIPIDAEMIA
     Route: 048
     Dates: start: 20010813, end: 20040120
  4. ADALAT [Concomitant]
     Indication: HYPERLIPIDAEMIA
     Route: 048
     Dates: start: 20010727, end: 20040120
  5. DIOVAN [Concomitant]
     Indication: HYPERTENSION
     Route: 048
     Dates: start: 20021018, end: 20040120
  6. CARDENALIN [Concomitant]
     Indication: HYPERTENSION
     Route: 048
     Dates: start: 20030221, end: 20040120
  7. ALDACTONE [Concomitant]
     Indication: HYPERTENSION
     Route: 048
     Dates: start: 20030425, end: 20040120

REACTIONS (9)
  - CEREBROVASCULAR DISORDER [None]
  - GLYCOSYLATED HAEMOGLOBIN INCREASED [None]
  - HYPERTENSION [None]
  - HYPOGLYCAEMIC COMA [None]
  - MEDICATION ERROR [None]
  - MYOCARDIAL INFARCTION [None]
  - MYOCARDIAL ISCHAEMIA [None]
  - PHARMACEUTICAL PRODUCT COMPLAINT [None]
  - SUDDEN DEATH [None]
